FAERS Safety Report 19233929 (Version 2)
Quarter: 2021Q4

REPORT INFORMATION
  Report Type: Spontaneous
  Country: CA (occurrence: CA)
  Receive Date: 20210508
  Receipt Date: 20211117
  Transmission Date: 20220303
  Serious: Yes (Other)
  Sender: FDA-Public Use
  Company Number: CA-SA-SAC20210505001547

PATIENT
  Age: 70 Year
  Sex: Female

DRUGS (6)
  1. RIFAMPIN [Suspect]
     Active Substance: RIFAMPIN
     Indication: Abscess limb
     Dosage: PRESCRIBED TO TAKE MEDICATION FOR 1 MONTH BUT PATIENT WAS ONLY ABLE TO TAKE IT FOR 2 WEEKS
  2. RIFAMPIN [Suspect]
     Active Substance: RIFAMPIN
     Indication: Vulval abscess
  3. CLINDAMYCIN [Suspect]
     Active Substance: CLINDAMYCIN
     Indication: Vulval abscess
     Dosage: PRESCRIBED TO TAKE MEDICATION FOR 1 MONTH BUT PATIENT WAS ONLY ABLE TO TAKE IT FOR 2 WEEKS
  4. CLINDAMYCIN [Suspect]
     Active Substance: CLINDAMYCIN
     Indication: Abscess limb
     Dosage: UNK
  5. REMICADE [Suspect]
     Active Substance: INFLIXIMAB
     Indication: Retinal vasculitis
     Dosage: UNK
     Route: 042
  6. REMICADE [Suspect]
     Active Substance: INFLIXIMAB
     Indication: Retinal vasculitis
     Dosage: UNK
     Route: 041

REACTIONS (6)
  - Abscess limb [Not Recovered/Not Resolved]
  - Vulval abscess [Not Recovered/Not Resolved]
  - Arthralgia [Recovering/Resolving]
  - Muscle spasms [Recovering/Resolving]
  - Diarrhoea [Recovering/Resolving]
  - Dyspnoea [Recovering/Resolving]

NARRATIVE: CASE EVENT DATE: 20190101
